FAERS Safety Report 10421289 (Version 5)
Quarter: 2014Q4

REPORT INFORMATION
  Report Type: Spontaneous
  Country: IE (occurrence: IE)
  Receive Date: 20140831
  Receipt Date: 20141111
  Transmission Date: 20150528
  Serious: Yes (Hospitalization, Other)
  Sender: FDA-Public Use
  Company Number: PHFR2014IE005791

PATIENT
  Age: 11 Year
  Sex: Female
  Weight: 46.8 kg

DRUGS (7)
  1. FOLIC ACID. [Concomitant]
     Active Substance: FOLIC ACID
     Indication: SICKLE CELL ANAEMIA
     Dosage: 5 MG
     Route: 048
  2. DROXIA//HYDROXYCARBAMIDE [Concomitant]
     Indication: SICKLE CELL ANAEMIA
     Dosage: 1G FROM MON TO THURS AND 500 MG FROM FRI TO SUN
     Route: 048
  3. FOLIC ACID. [Concomitant]
     Active Substance: FOLIC ACID
     Indication: PROPHYLAXIS
  4. CALVEPEN [Concomitant]
     Indication: PROPHYLAXIS
  5. DESFERAL [Suspect]
     Active Substance: DEFEROXAMINE MESYLATE
     Indication: SICKLE CELL ANAEMIA
     Dosage: 2000 MG IN 46 ML 0.9% SODIUM CHLORIDE IN C1073 INFUSER
     Route: 058
     Dates: start: 20140207
  6. DESFERAL [Suspect]
     Active Substance: DEFEROXAMINE MESYLATE
     Indication: IRON OVERLOAD
  7. CALVEPEN [Concomitant]
     Indication: SICKLE CELL ANAEMIA
     Dosage: 333 MG, BID
     Route: 048

REACTIONS (1)
  - Injection site abscess [Recovered/Resolved]

NARRATIVE: CASE EVENT DATE: 20140715
